FAERS Safety Report 24125043 (Version 1)
Quarter: 2024Q3

REPORT INFORMATION
  Report Type: Spontaneous
  Country: US (occurrence: US)
  Receive Date: 20240723
  Receipt Date: 20240723
  Transmission Date: 20241016
  Serious: No
  Sender: BRISTOL MYERS SQUIBB
  Company Number: US-BRISTOL-MYERS SQUIBB COMPANY-2024-115644

PATIENT
  Age: 65 Year
  Sex: Female

DRUGS (1)
  1. ORENCIA [Suspect]
     Active Substance: ABATACEPT
     Indication: Rheumatoid arthritis
     Route: 058
     Dates: start: 202401

REACTIONS (7)
  - Joint swelling [Unknown]
  - Arthralgia [Unknown]
  - Acne [Unknown]
  - Injection site irritation [Unknown]
  - Stomatitis [Unknown]
  - Pain in extremity [Unknown]
  - Inflammation [Unknown]
